FAERS Safety Report 8999300 (Version 2)
Quarter: 2013Q1

REPORT INFORMATION
  Report Type: Report from Study
  Country: CA (occurrence: CA)
  Receive Date: 20130103
  Receipt Date: 20130211
  Transmission Date: 20140127
  Serious: Yes (Hospitalization)
  Sender: FDA-Public Use
  Company Number: CA-JNJFOC-20130100310

PATIENT
  Age: 66 Year
  Sex: Female
  Weight: 89.81 kg

DRUGS (1)
  1. REMICADE [Suspect]
     Indication: POLYCHONDRITIS
     Route: 042

REACTIONS (2)
  - Fall [Unknown]
  - Hip fracture [Unknown]
